FAERS Safety Report 4578215-1 (Version None)
Quarter: 2005Q1

REPORT INFORMATION
  Report Type: 
  Country: None (occurrence: None)
  Receive Date: 20050209
  Receipt Date: 20050124
  Transmission Date: 20050727
  Serious: Yes (Life-Threatening, Hospitalization, Other)
  Sender: FDA-Public Use
  Company Number: USA050189116

PATIENT
  Age: 35 Year
  Sex: Female
  Weight: 84 kg

DRUGS (2)
  1. ZYPREXA [Suspect]
     Indication: SCHIZOPHRENIA
     Dosage: 10 MG/1 AT BEDTIME
     Dates: start: 20010101
  2. LITHIUM [Concomitant]

REACTIONS (8)
  - COLITIS ULCERATIVE [None]
  - CROHN'S DISEASE [None]
  - GASTRIC ULCER [None]
  - HYPERPHAGIA [None]
  - INFLUENZA [None]
  - RECTAL HAEMORRHAGE [None]
  - VOMITING [None]
  - WEIGHT INCREASED [None]
